FAERS Safety Report 9693115 (Version 3)
Quarter: 2014Q1

REPORT INFORMATION
  Report Type: Report from Study
  Country: US (occurrence: US)
  Receive Date: 20131118
  Receipt Date: 20140311
  Transmission Date: 20141002
  Serious: No
  Sender: FDA-Public Use
  Company Number: US-SA-POMP-1002956

PATIENT
  Age: 35 Month
  Sex: Male
  Weight: 11 kg

DRUGS (47)
  1. ALGLUCOSIDASE ALFA [Suspect]
     Indication: GLYCOGEN STORAGE DISEASE TYPE II
     Dosage: 20 MG/KG, QW
     Route: 042
     Dates: start: 20110429
  2. LEVOSALBUTAMOL [Concomitant]
     Indication: COUGH
     Dosage: 1.25 UNK, PRN DOSE:1.25 UNKNOWN
     Route: 055
     Dates: start: 20110318
  3. LEVOSALBUTAMOL [Concomitant]
     Indication: NASAL CONGESTION
     Dosage: 1.25 UNK, PRN DOSE:1.25 UNKNOWN
     Route: 055
     Dates: start: 20110318
  4. BUDESONIDE [Concomitant]
     Indication: ASTHMA
     Dosage: 0.5 UNK, BID
     Route: 055
     Dates: start: 20110318
  5. LIDOCAINE [Concomitant]
     Indication: PREMEDICATION
     Dosage: 2.5 % PRIOR TO IV INSERTION
     Route: 061
     Dates: start: 20120515
  6. LIDOCAINE [Concomitant]
     Indication: ANAESTHESIA
     Dosage: 2.5 % PRIOR TO IV INSERTION
     Route: 061
     Dates: start: 20120515
  7. IBUPROFEN [Concomitant]
     Indication: PREMEDICATION
     Dosage: 100 MG, PRN FEVER
     Route: 048
     Dates: start: 20120515
  8. IBUPROFEN [Concomitant]
     Indication: PYREXIA
     Dosage: 100 MG, PRN FEVER
     Route: 048
     Dates: start: 20120515
  9. IBUPROFEN [Concomitant]
     Indication: PREMEDICATION
     Route: 048
     Dates: start: 20120803
  10. IBUPROFEN [Concomitant]
     Indication: PYREXIA
     Route: 048
     Dates: start: 20120803
  11. PARACETAMOL [Concomitant]
     Indication: PYREXIA
     Dosage: 180 MG, Q4HR PRN FEVER
     Route: 048
     Dates: start: 20130217
  12. PALIVIZUMAB [Concomitant]
     Indication: ANTIVIRAL PROPHYLAXIS
     Dosage: 171 MG, ONCE
     Route: 030
     Dates: start: 20130213, end: 20130213
  13. DIPHENHYDRAMINE [Concomitant]
     Indication: PREMEDICATION
     Dosage: 12.5 MG, PRN
     Route: 048
     Dates: start: 20120515
  14. DIPHENHYDRAMINE [Concomitant]
     Indication: PREMEDICATION
     Route: 042
     Dates: start: 20120622, end: 20120622
  15. VITAMINS NOS [Concomitant]
     Indication: NUTRITIONAL SUPPLEMENTATION
     Dosage: 1 ML, QD
     Route: 048
     Dates: start: 20121128
  16. METHYLPREDNISOLONE [Concomitant]
     Indication: PREMEDICATION
     Dosage: 6 MG, ONCE
     Route: 042
     Dates: start: 20130306, end: 20130308
  17. METHYLPREDNISOLONE [Concomitant]
     Indication: RESPIRATORY DISTRESS
     Dosage: 6 MG, ONCE
     Route: 042
     Dates: start: 20130306, end: 20130308
  18. METHYLPREDNISOLONE [Concomitant]
     Indication: PREMEDICATION
     Route: 042
     Dates: start: 20130321
  19. METHYLPREDNISOLONE [Concomitant]
     Indication: RESPIRATORY DISTRESS
     Route: 042
     Dates: start: 20130321
  20. AMOXICILLIN [Concomitant]
     Indication: OTITIS MEDIA
     Route: 048
     Dates: start: 20120426, end: 20120505
  21. AMOXICILLIN [Concomitant]
     Indication: PNEUMONIA
     Route: 048
     Dates: start: 20120426, end: 20120505
  22. AMOXICILLIN [Concomitant]
     Indication: OTITIS MEDIA
     Route: 048
     Dates: start: 20120618, end: 20120628
  23. AMOXICILLIN [Concomitant]
     Indication: PNEUMONIA
     Route: 048
     Dates: start: 20120618, end: 20120628
  24. AMOXICILLIN [Concomitant]
     Indication: OTITIS MEDIA
     Route: 048
     Dates: start: 20120821, end: 20120828
  25. AMOXICILLIN [Concomitant]
     Indication: PNEUMONIA
     Route: 048
     Dates: start: 20120821, end: 20120828
  26. AMOXICILLIN [Concomitant]
     Indication: OTITIS MEDIA
     Route: 048
     Dates: start: 20130217, end: 20130225
  27. AMOXICILLIN [Concomitant]
     Indication: PNEUMONIA
     Route: 048
     Dates: start: 20130217, end: 20130225
  28. XOPENEX [Concomitant]
     Indication: COUGH
     Route: 055
     Dates: start: 20110318
  29. XOPENEX [Concomitant]
     Indication: NASAL CONGESTION
     Route: 055
     Dates: start: 20110318
  30. PULMICORT [Concomitant]
     Indication: ASTHMA
     Route: 055
     Dates: start: 20110318
  31. EMLA CREAM [Concomitant]
     Indication: PREMEDICATION
     Route: 061
     Dates: start: 20120515
  32. NEOMYCIN [Concomitant]
     Indication: ANTIBIOTIC PROPHYLAXIS
     Route: 001
     Dates: start: 20120905, end: 20120911
  33. TYLENOL [Concomitant]
     Indication: PREMEDICATION
     Dates: start: 20120622, end: 20120622
  34. TYLENOL [Concomitant]
     Indication: PYREXIA
     Dates: start: 20120622, end: 20120622
  35. TYLENOL [Concomitant]
     Indication: PREMEDICATION
     Dates: start: 20130209, end: 20130209
  36. TYLENOL [Concomitant]
     Indication: PYREXIA
     Dates: start: 20130209, end: 20130209
  37. TYLENOL [Concomitant]
     Indication: PREMEDICATION
     Dates: start: 20130205, end: 20130215
  38. TYLENOL [Concomitant]
     Indication: PYREXIA
     Dates: start: 20130205, end: 20130215
  39. TYLENOL [Concomitant]
     Indication: PREMEDICATION
     Dates: start: 20130217
  40. TYLENOL [Concomitant]
     Indication: PYREXIA
     Dates: start: 20130217
  41. NORMAL SALINE [Concomitant]
     Indication: PREMEDICATION
     Dates: start: 20130215, end: 20130215
  42. AUGMENTIN [Concomitant]
     Indication: PNEUMONIA
     Route: 048
     Dates: start: 20130225, end: 20130306
  43. AUGMENTIN [Concomitant]
     Indication: PNEUMONIA
     Dates: start: 20130308, end: 20130316
  44. PREDNISOLONE [Concomitant]
     Indication: PNEUMONIA
     Route: 048
     Dates: start: 20130308, end: 20130311
  45. IPRATROPIUM BROMIDE [Concomitant]
     Indication: RESPIRATORY DISTRESS
     Route: 055
     Dates: start: 20130306, end: 20130308
  46. ALBUTEROL [Concomitant]
     Indication: WHEEZING
     Route: 055
     Dates: start: 20130306, end: 20130308
  47. ALBUTEROL [Concomitant]
     Indication: RESPIRATORY DISTRESS
     Route: 055
     Dates: start: 20130306, end: 20130308

REACTIONS (3)
  - Skin hyperpigmentation [Recovered/Resolved]
  - Pyrexia [Recovered/Resolved]
  - Rash [Recovered/Resolved]
